FAERS Safety Report 25786871 (Version 1)
Quarter: 2025Q3

REPORT INFORMATION
  Report Type: Spontaneous
  Country: US (occurrence: US)
  Receive Date: 20250910
  Receipt Date: 20250910
  Transmission Date: 20251021
  Serious: No
  Sender: PFIZER
  Company Number: US-PFIZER INC-PV202500108686

PATIENT
  Age: 27 Year
  Sex: Male

DRUGS (1)
  1. NIFEDIPINE [Suspect]
     Active Substance: NIFEDIPINE
     Indication: Hypertension

REACTIONS (4)
  - Drug ineffective [Unknown]
  - Headache [Unknown]
  - Mood swings [Not Recovered/Not Resolved]
  - Condition aggravated [Unknown]
